FAERS Safety Report 4446946-X (Version None)
Quarter: 2004Q3

REPORT INFORMATION
  Report Type: 
  Country: None (occurrence: None)
  Receive Date: 20040908
  Receipt Date: 20040824
  Transmission Date: 20050211
  Serious: Yes (Life-Threatening, Hospitalization)
  Sender: FDA-Public Use
  Company Number: LBID00204002460

PATIENT
  Sex: Male
  Weight: 97.07 kg

DRUGS (8)
  1. LITHIUM CARBONATE [Suspect]
     Indication: MOOD ALTERED
     Dosage: 600 MG BID PO
     Route: 048
     Dates: start: 20021001, end: 20040721
  2. CLOZARIL [Concomitant]
  3. HALDOL [Concomitant]
  4. THYROXIN (LEVOTHYROXINE SODIUM) [Concomitant]
  5. METFORMIN HCL [Concomitant]
  6. NIACIN (NIACIN) [Concomitant]
  7. BENZTROPINE MESYLATE [Concomitant]
  8. DEPAKOTE [Concomitant]

REACTIONS (1)
  - IDIOPATHIC THROMBOCYTOPENIC PURPURA [None]
